FAERS Safety Report 8923546 (Version 1)
Quarter: 2012Q4

REPORT INFORMATION
  Report Type: 
  Country: US (occurrence: US)
  Receive Date: 20121124
  Receipt Date: 20121124
  Transmission Date: 20130627
  Serious: No
  Sender: FDA-Public Use
  Company Number: US-BAYER-2012-108749

PATIENT
  Sex: Female

DRUGS (2)
  1. BEYAZ [Suspect]
  2. GIANVI [Suspect]

REACTIONS (1)
  - Alopecia [None]
